FAERS Safety Report 4691821-9 (Version None)
Quarter: 2005Q2

REPORT INFORMATION
  Report Type: 
  Country: None (occurrence: None)
  Receive Date: 20050615
  Receipt Date: 20050615
  Transmission Date: 20051028
  Serious: Yes (Other)
  Sender: FDA-Public Use
  Company Number: None

PATIENT
  Sex: Female
  Weight: 83.9154 kg

DRUGS (6)
  1. CRESTOR [Suspect]
     Indication: BLOOD CHOLESTEROL INCREASED
     Dosage: BY MOUTH ONCE DAILY  (THERAPY DATES: 8/31/04 TO LAST WEEK)
     Route: 048
     Dates: start: 20040831
  2. ESTRADIOL [Concomitant]
  3. DICLOFENAC [Concomitant]
  4. MOBIC [Concomitant]
  5. VIT E [Concomitant]
  6. FISH OIL [Concomitant]

REACTIONS (8)
  - ANXIETY [None]
  - ASTHENIA [None]
  - DYSPNOEA [None]
  - EXTRASYSTOLES [None]
  - MOBILITY DECREASED [None]
  - PALPITATIONS [None]
  - PHARYNGOLARYNGEAL PAIN [None]
  - THROAT IRRITATION [None]
